FAERS Safety Report 13126342 (Version 1)
Quarter: 2017Q1

REPORT INFORMATION
  Report Type: Spontaneous
  Country: DE (occurrence: DE)
  Receive Date: 20170118
  Receipt Date: 20170118
  Transmission Date: 20170428
  Serious: Yes (Other)
  Sender: FDA-Public Use
  Company Number: PHHY2015DE145322

PATIENT
  Sex: Male

DRUGS (3)
  1. CALCIUM [Concomitant]
     Active Substance: CALCIUM
     Indication: PRODUCT USED FOR UNKNOWN INDICATION
     Route: 065
  2. MAGNESIUM STEARATE [Concomitant]
     Active Substance: MAGNESIUM STEARATE
     Indication: PRODUCT USED FOR UNKNOWN INDICATION
     Route: 065
  3. GLIVEC [Suspect]
     Active Substance: IMATINIB MESYLATE
     Indication: GASTROINTESTINAL STROMAL TUMOUR
     Dosage: 400 MG, (1 DF) QD
     Route: 065
     Dates: start: 201510

REACTIONS (17)
  - Muscle spasms [Unknown]
  - Fluid retention [Unknown]
  - Haemoglobin decreased [Unknown]
  - Second primary malignancy [Unknown]
  - Glomerular filtration rate decreased [Unknown]
  - Gastric disorder [Unknown]
  - Sleep disorder [Unknown]
  - Flatulence [Unknown]
  - Cystitis [Unknown]
  - White blood cell count decreased [Unknown]
  - Blood glucose increased [Unknown]
  - Prostate cancer [Unknown]
  - Abdominal distension [Unknown]
  - Nasopharyngitis [Recovered/Resolved]
  - Red blood cell count decreased [Unknown]
  - Nausea [Unknown]
  - Eyelid oedema [Unknown]

NARRATIVE: CASE EVENT DATE: 2015
